FAERS Safety Report 8253842-9 (Version None)
Quarter: 2012Q2

REPORT INFORMATION
  Report Type: 
  Country: None (occurrence: None)
  Receive Date: 20120402
  Receipt Date: 20120314
  Transmission Date: 20120825
  Serious: No
  Sender: FDA-Public Use
  Company Number: US-AMGEN-USASP2012016768

PATIENT
  Age: 57 Year
  Sex: Female

DRUGS (1)
  1. ENBREL [Suspect]
     Indication: RHEUMATOID ARTHRITIS
     Dosage: 50 MG, QWK
     Dates: start: 20120201

REACTIONS (8)
  - DIZZINESS [None]
  - FEELING ABNORMAL [None]
  - FATIGUE [None]
  - PHOTOPHOBIA [None]
  - HEADACHE [None]
  - TREMOR [None]
  - MUSCULAR WEAKNESS [None]
  - MUSCLE SPASMS [None]
